FAERS Safety Report 6382092-6 (Version None)
Quarter: 2009Q3

REPORT INFORMATION
  Report Type: 
  Country: None (occurrence: None)
  Receive Date: 20090930
  Receipt Date: 20090921
  Transmission Date: 20100115
  Serious: Yes (Hospitalization)
  Sender: FDA-Public Use
  Company Number: PHHY2009FR40859

PATIENT
  Sex: Male

DRUGS (14)
  1. AREDIA [Suspect]
     Dosage: UNK
     Dates: start: 20090824
  2. ORAMORPH SR [Suspect]
     Dosage: UNK
     Route: 002
     Dates: start: 20090819, end: 20090827
  3. PNEUMO 23 [Suspect]
     Dosage: ONCE SUBCUTANEOUS INJECTION
     Route: 058
     Dates: start: 20090821
  4. FOSAVANCE [Suspect]
     Dosage: UNK
     Route: 048
     Dates: start: 20090825
  5. PREVISCAN [Concomitant]
     Dosage: 0.5 DF, UNK
  6. PREVISCAN [Concomitant]
     Dosage: 0.75 DF, UNK
  7. COVERSYL                                /BEL/ [Concomitant]
     Dosage: 2 MG, QD
  8. DIGOXIN [Concomitant]
     Dosage: 1 DF, QD
  9. CARDENSIEL [Concomitant]
     Dosage: 1.25 MG, QD
  10. SOLUPRED [Concomitant]
     Dosage: 10 MG, QD
  11. METOJECT [Concomitant]
     Dosage: 15 MG, QW
  12. SPECIAFOLDINE [Concomitant]
     Dosage: 5 MG 48 HOURS
  13. CONTRAMAL [Concomitant]
  14. JOSIR [Concomitant]

REACTIONS (3)
  - ABDOMINAL PAIN [None]
  - NAUSEA [None]
  - PANCREATITIS ACUTE [None]
